FAERS Safety Report 25208494 (Version 1)
Quarter: 2025Q2

REPORT INFORMATION
  Report Type: Spontaneous
  Country: US (occurrence: US)
  Receive Date: 20250417
  Receipt Date: 20250417
  Transmission Date: 20250716
  Serious: No
  Sender: BRISTOL MYERS SQUIBB
  Company Number: US-BRISTOL-MYERS SQUIBB COMPANY-2025-054586

PATIENT
  Age: 13 Year
  Sex: Male
  Weight: 56.25 kg

DRUGS (2)
  1. THALOMID [Suspect]
     Active Substance: THALIDOMIDE
     Indication: Cerebellar tumour
     Route: 048
  2. THALOMID [Suspect]
     Active Substance: THALIDOMIDE
     Route: 048

REACTIONS (1)
  - Off label use [Unknown]
